FAERS Safety Report 19910381 (Version 2)
Quarter: 2022Q4

REPORT INFORMATION
  Report Type: Spontaneous
  Country: US (occurrence: US)
  Receive Date: 20211004
  Receipt Date: 20221017
  Transmission Date: 20230113
  Serious: Yes (Death, Other)
  Sender: FDA-Public Use
  Company Number: US-AMGEN-USASP2021150998

PATIENT

DRUGS (4)
  1. PANITUMUMAB [Suspect]
     Active Substance: PANITUMUMAB
     Indication: Gastrooesophageal cancer
     Dosage: UNK
     Route: 065
  2. PANITUMUMAB [Suspect]
     Active Substance: PANITUMUMAB
     Indication: Off label use
  3. CETUXIMAB [Suspect]
     Active Substance: CETUXIMAB
     Indication: Oesophageal cancer metastatic
     Dosage: UNK
     Route: 065
  4. GEFITINIB [Suspect]
     Active Substance: GEFITINIB
     Indication: Oesophageal cancer metastatic
     Dosage: UNK
     Route: 065

REACTIONS (8)
  - Death [Fatal]
  - Gastrooesophageal cancer [Unknown]
  - Skin toxicity [Unknown]
  - Diarrhoea [Unknown]
  - Toxicity to various agents [Unknown]
  - Fatigue [Unknown]
  - Hypomagnesaemia [Unknown]
  - Off label use [Unknown]
